FAERS Safety Report 7353434-X (Version None)
Quarter: 2011Q1

REPORT INFORMATION
  Report Type: 
  Country: None (occurrence: None)
  Receive Date: 20110310
  Receipt Date: 20110310
  Transmission Date: 20110831
  Serious: Yes (Hospitalization)
  Sender: FDA-Public Use
  Company Number: None

PATIENT
  Age: 26 Year
  Sex: Female
  Weight: 62.1428 kg

DRUGS (3)
  1. MIRENA [Suspect]
     Indication: PROPHYLAXIS
     Dates: start: 20090928, end: 20110307
  2. MIRENA [Suspect]
     Indication: ENDOMETRIOSIS
     Dates: start: 20090928, end: 20110307
  3. MIRENA [Suspect]
     Indication: CONTRACEPTION
     Dates: start: 20090928, end: 20110307

REACTIONS (4)
  - DEVICE DISLOCATION [None]
  - PAIN [None]
  - OVARIAN CYST [None]
  - IMPAIRED WORK ABILITY [None]
